FAERS Safety Report 6897938-2 (Version None)
Quarter: 2010Q3

REPORT INFORMATION
  Report Type: 
  Country: None (occurrence: None)
  Receive Date: 20100802
  Receipt Date: 20070803
  Transmission Date: 20110219
  Serious: No
  Sender: FDA-Public Use
  Company Number: US-PFIZER INC-2007066290

PATIENT
  Sex: Female
  Weight: 75 kg

DRUGS (10)
  1. LYRICA [Suspect]
     Indication: PAIN IN EXTREMITY
     Route: 048
     Dates: start: 20070501
  2. TRAZODONE [Concomitant]
     Indication: SLEEP DISORDER
     Route: 048
  3. SEROQUEL [Concomitant]
     Route: 048
  4. SINEQUAN [Concomitant]
     Route: 048
  5. DRUG, UNSPECIFIED [Concomitant]
  6. VISTARIL [Concomitant]
     Route: 048
  7. ALL OTHER THERAPEUTIC PRODUCTS [Concomitant]
  8. KLONOPIN [Concomitant]
  9. DILANTIN [Concomitant]
     Indication: CONVULSION
  10. FENTANYL [Concomitant]
     Indication: PAIN IN EXTREMITY

REACTIONS (1)
  - OVERDOSE [None]
